FAERS Safety Report 15110800 (Version 1)
Quarter: 2018Q3

REPORT INFORMATION
  Report Type: Report from Study
  Country: IT (occurrence: IT)
  Receive Date: 20180705
  Receipt Date: 20180705
  Transmission Date: 20181010
  Serious: Yes (Hospitalization)
  Sender: FDA-Public Use
  Company Number: IT-TEVA-2018-IT-919931

PATIENT
  Age: 66 Year
  Sex: Male

DRUGS (4)
  1. PANTOPRAZOLE [Concomitant]
     Active Substance: PANTOPRAZOLE
     Route: 065
  2. TICLOPIDINE [Suspect]
     Active Substance: TICLOPIDINE
     Indication: THROMBOSIS PROPHYLAXIS
     Dosage: 500 MILLIGRAM DAILY;
     Route: 048
  3. TRITTICO 150 MG COMPRESSE RIVESTITE CON FILM A RILASCIO PROLUNGATO C [Concomitant]
     Indication: DEPRESSION
  4. OMNIC 0,4 MG, CAPSULE RIGIDE A RILASCIO MODIFICATO [Concomitant]

REACTIONS (3)
  - Anaemia [Recovering/Resolving]
  - Melaena [Recovering/Resolving]
  - Abdominal pain upper [Recovering/Resolving]

NARRATIVE: CASE EVENT DATE: 20171229
